FAERS Safety Report 14808241 (Version 2)
Quarter: 2018Q2

REPORT INFORMATION
  Report Type: Spontaneous
  Country: US (occurrence: US)
  Receive Date: 20180425
  Receipt Date: 20180605
  Transmission Date: 20180711
  Serious: Yes (Hospitalization, Other)
  Sender: FDA-Public Use
  Company Number: US-JNJFOC-20180426159

PATIENT
  Sex: Female
  Weight: 65.77 kg

DRUGS (9)
  1. TOPAMAX [Suspect]
     Active Substance: TOPIRAMATE
     Indication: PRODUCT USED FOR UNKNOWN INDICATION
     Dosage: NIGHT
     Route: 048
  2. SEROQUEL [Concomitant]
     Active Substance: QUETIAPINE FUMARATE
     Route: 065
  3. DOXYCYCLINE. [Concomitant]
     Active Substance: DOXYCYCLINE
     Route: 065
  4. MELATONIN [Concomitant]
     Active Substance: MELATONIN
     Dosage: ^5 OR 10 MG^, NIGHTLY
     Route: 065
  5. CYMBALTA [Suspect]
     Active Substance: DULOXETINE HYDROCHLORIDE
     Indication: PRODUCT USED FOR UNKNOWN INDICATION
     Route: 065
  6. LYRICA [Concomitant]
     Active Substance: PREGABALIN
     Indication: NEURALGIA
     Route: 065
  7. TRANXENE [Concomitant]
     Active Substance: CLORAZEPATE DIPOTASSIUM
     Indication: NIGHTMARE
     Dosage: ^5 OR 10 MG^, NIGHTLY
     Route: 065
  8. TOPAMAX [Suspect]
     Active Substance: TOPIRAMATE
     Indication: PRODUCT USED FOR UNKNOWN INDICATION
     Route: 048
  9. TOPIRAMATE. [Suspect]
     Active Substance: TOPIRAMATE
     Indication: PRODUCT USED FOR UNKNOWN INDICATION
     Route: 048

REACTIONS (17)
  - Loss of consciousness [Recovered/Resolved]
  - Therapeutic response increased [Unknown]
  - Weight decreased [Unknown]
  - Hospitalisation [Unknown]
  - Nephrolithiasis [Unknown]
  - Urinary tract infection [Unknown]
  - Depression [Unknown]
  - Exposure during pregnancy [Unknown]
  - Post-traumatic stress disorder [Unknown]
  - Muscle twitching [Unknown]
  - Memory impairment [Unknown]
  - Lung disorder [Unknown]
  - Nerve injury [Unknown]
  - Vision blurred [Unknown]
  - Headache [Unknown]
  - Speech disorder [Unknown]
  - Fatigue [Unknown]
